FAERS Safety Report 25778058 (Version 1)
Quarter: 2025Q3

REPORT INFORMATION
  Report Type: Spontaneous
  Country: IN (occurrence: IN)
  Receive Date: 20250909
  Receipt Date: 20250909
  Transmission Date: 20251021
  Serious: Yes (Death, Hospitalization, Other)
  Sender: RANBAXY
  Company Number: IN-SUN PHARMACEUTICAL INDUSTRIES LTD-2025R1-526133

PATIENT
  Age: 62 Year
  Sex: Male

DRUGS (3)
  1. METHOTREXATE [Suspect]
     Active Substance: METHOTREXATE
     Indication: Rheumatoid arthritis
     Dosage: 2 DOSAGE FORM, BID
     Route: 065
  2. ACECLOFENAC [Concomitant]
     Active Substance: ACECLOFENAC
     Indication: Rheumatoid arthritis
     Dosage: UNK, BID
     Route: 065
  3. PREDNISOLONE [Concomitant]
     Active Substance: PREDNISOLONE
     Indication: Rheumatoid arthritis
     Dosage: 10 MILLIGRAM, QD
     Route: 065

REACTIONS (5)
  - Pancytopenia [Unknown]
  - Toxicity to various agents [Unknown]
  - Thrombocytopenia [Unknown]
  - Sepsis [Unknown]
  - Cardiac arrest [Fatal]
